FAERS Safety Report 9804967 (Version 2)
Quarter: 2014Q1

REPORT INFORMATION
  Report Type: Spontaneous
  Country: US (occurrence: US)
  Receive Date: 20140109
  Receipt Date: 20140109
  Transmission Date: 20141002
  Serious: Yes (Disabling)
  Sender: FDA-Public Use
  Company Number: US-GE HEALTHCARE MEDICAL DIAGNOSTICS-OSCN-PR-0909S-0425

PATIENT
  Age: 58 Year
  Sex: Female

DRUGS (5)
  1. OMNISCAN [Suspect]
     Indication: TRANSPLANT EVALUATION
     Route: 042
     Dates: start: 20070112, end: 20070112
  2. OMNISCAN [Suspect]
     Indication: PRODUCT USED FOR UNKNOWN INDICATION
     Route: 042
     Dates: start: 20070120, end: 20070120
  3. OMNISCAN [Suspect]
     Indication: ILIAC VEIN OCCLUSION
     Route: 042
     Dates: start: 20070123, end: 20070123
  4. OMNISCAN [Suspect]
     Route: 042
     Dates: start: 20070130, end: 20070130
  5. GADOLINIUM (UNSPECIFIED) [Suspect]
     Indication: BACK PAIN
     Route: 042
     Dates: start: 20010830, end: 20010830

REACTIONS (1)
  - Nephrogenic systemic fibrosis [Not Recovered/Not Resolved]
